FAERS Safety Report 25074562 (Version 2)
Quarter: 2025Q2

REPORT INFORMATION
  Report Type: Spontaneous
  Country: US (occurrence: US)
  Receive Date: 20250313
  Receipt Date: 20250416
  Transmission Date: 20250717
  Serious: No
  Sender: JOHNSON AND JOHNSON
  Company Number: US-JNJFOC-20250325966

PATIENT
  Age: 63 Year
  Sex: Female
  Weight: 56.25 kg

DRUGS (7)
  1. SPRAVATO [Suspect]
     Active Substance: ESKETAMINE
     Indication: Depression
     Route: 045
  2. KLONOPIN [Suspect]
     Active Substance: CLONAZEPAM
     Indication: Post-traumatic stress disorder
     Route: 048
  3. KLONOPIN [Suspect]
     Active Substance: CLONAZEPAM
     Indication: Anxiety
  4. LAMICTAL [Suspect]
     Active Substance: LAMOTRIGINE
     Indication: Therapeutic response decreased
     Route: 048
  5. LAMICTAL [Suspect]
     Active Substance: LAMOTRIGINE
     Indication: Post-traumatic stress disorder
  6. LAMICTAL [Suspect]
     Active Substance: LAMOTRIGINE
     Indication: Anxiety
  7. CHOLECALCIFEROL [Concomitant]
     Active Substance: CHOLECALCIFEROL

REACTIONS (2)
  - Dissociation [Recovered/Resolved]
  - Illusion [Unknown]

NARRATIVE: CASE EVENT DATE: 20250311
